FAERS Safety Report 9312240 (Version 1)
Quarter: 2013Q2

REPORT INFORMATION
  Report Type: Spontaneous
  Country: US (occurrence: US)
  Receive Date: 20130528
  Receipt Date: 20130528
  Transmission Date: 20140414
  Serious: No
  Sender: FDA-Public Use
  Company Number: US-PFIZER INC-2013159504

PATIENT
  Sex: Male
  Weight: 77.1 kg

DRUGS (4)
  1. VENLAFAXINE HCL [Suspect]
     Dosage: UNK
     Dates: start: 201201
  2. XANAX [Suspect]
     Indication: STRESS
     Dosage: UNK
     Route: 048
  3. XANAX [Suspect]
     Indication: ANXIETY
  4. XANAX [Suspect]
     Indication: FEELING OF RELAXATION

REACTIONS (1)
  - Celibacy [Unknown]
